FAERS Safety Report 25700071 (Version 1)
Quarter: 2025Q3

REPORT INFORMATION
  Report Type: Spontaneous
  Country: US (occurrence: None)
  Receive Date: 20250818
  Receipt Date: 20250818
  Transmission Date: 20251021
  Serious: Yes (Life-Threatening, Hospitalization)
  Sender: FDA-CTU
  Company Number: None

PATIENT
  Age: 72 Year
  Sex: Female

DRUGS (4)
  1. IOHEXOL [Suspect]
     Active Substance: IOHEXOL
  2. CEFTRIAXONE [Suspect]
     Active Substance: CEFTRIAXONE
  3. IOHEXOL [Concomitant]
     Active Substance: IOHEXOL
  4. CEFTRIAXONE [Concomitant]
     Active Substance: CEFTRIAXONE

REACTIONS (4)
  - Seizure [None]
  - Pulseless electrical activity [None]
  - Cardiac arrest [None]
  - Hypotension [None]

NARRATIVE: CASE EVENT DATE: 20240811
